FAERS Safety Report 18981173 (Version 1)
Quarter: 2021Q1

REPORT INFORMATION
  Report Type: Spontaneous
  Country: US (occurrence: US)
  Receive Date: 20210306
  Receipt Date: 20210306
  Transmission Date: 20210420
  Serious: Yes (Hospitalization)
  Sender: FDA-Public Use
  Company Number: None

PATIENT
  Age: 72 Year
  Sex: Female
  Weight: 76.5 kg

DRUGS (1)
  1. ASPIRIN. [Suspect]
     Active Substance: ASPIRIN
     Indication: PRODUCT USED FOR UNKNOWN INDICATION
     Dates: end: 20210212

REACTIONS (9)
  - Neuroendocrine carcinoma [None]
  - Hepatic enzyme increased [None]
  - Nausea [None]
  - Vomiting [None]
  - Cholelithiasis [None]
  - Gallbladder disorder [None]
  - Abdominal pain upper [None]
  - Hepatic mass [None]
  - Alpha 1 foetoprotein increased [None]

NARRATIVE: CASE EVENT DATE: 20210212
